FAERS Safety Report 6744186 (Version 2)
Quarter: 2021Q3

REPORT INFORMATION
  Report Type: Spontaneous
  Country: NL (occurrence: NL)
  Receive Date: 20080820
  Receipt Date: 20210817
  Transmission Date: 20211014
  Serious: Yes (Death, Other)
  Sender: FDA-Public Use
  Company Number: GXKR2008NL07614

PATIENT
  Age: 41 Year
  Sex: Male

DRUGS (27)
  1. VALACICLOVIR [Concomitant]
     Active Substance: VALACYCLOVIR HYDROCHLORIDE
     Indication: ANTIFUNGAL PROPHYLAXIS
  2. ONCOVIN [Suspect]
     Active Substance: VINCRISTINE SULFATE
     Indication: PERIPHERAL T-CELL LYMPHOMA UNSPECIFIED
     Dosage: 8 CHOP?CYCLES, 14 DAY INTERVALS
     Route: 065
     Dates: end: 200610
  3. ONCOVIN [Suspect]
     Active Substance: VINCRISTINE SULFATE
     Dosage: 1.4 MG/M2, QCY, ON DAY 1
     Route: 042
  4. ALEMTUZUMAB [Suspect]
     Active Substance: ALEMTUZUMAB
     Indication: PERIPHERAL T-CELL LYMPHOMA UNSPECIFIED
     Dosage: 30 MG, 3 DOSES PER CHOP?CYCLE
     Route: 065
     Dates: end: 200610
  5. COTRIMOXAZOLE [Concomitant]
     Active Substance: SULFAMETHOXAZOLE\TRIMETHOPRIM
     Indication: ANTIVIRAL PROPHYLAXIS
     Dosage: 480 MG,UNK
     Route: 065
  6. PEGFILGRASTIM [Concomitant]
     Active Substance: PEGFILGRASTIM
     Indication: PRODUCT USED FOR UNKNOWN INDICATION
     Dosage: 6 MG,HS
     Route: 058
  7. PARACETAMOL [Concomitant]
     Active Substance: ACETAMINOPHEN
     Indication: PREMEDICATION
     Dosage: 1000 MG,UNK
     Route: 065
  8. ADRIAMYCIN [Suspect]
     Active Substance: DOXORUBICIN HYDROCHLORIDE
     Dosage: 50 MG/M2, QCY, ON DAY 1
     Route: 042
  9. ALEMTUZUMAB [Suspect]
     Active Substance: ALEMTUZUMAB
     Dosage: 3 MG, QCY, INTRAVENOUS LINE FOR 2 H
     Route: 042
  10. COTRIMOXAZOLE [Concomitant]
     Active Substance: SULFAMETHOXAZOLE\TRIMETHOPRIM
     Indication: PROPHYLAXIS
     Dosage: UNK
     Route: 065
     Dates: end: 200610
  11. FLUCONAZOLE. [Concomitant]
     Active Substance: FLUCONAZOLE
     Indication: PROPHYLAXIS
     Dosage: UNK
     Route: 065
     Dates: end: 200610
  12. CYCLOPHOSPHAMIDE. [Suspect]
     Active Substance: CYCLOPHOSPHAMIDE
     Dosage: 750 MG/M2, QCY, ON DAY 1
     Route: 042
  13. ADRIAMYCIN [Suspect]
     Active Substance: DOXORUBICIN HYDROCHLORIDE
     Indication: PERIPHERAL T-CELL LYMPHOMA UNSPECIFIED
     Dosage: 8 CHOP?CYCLES, 14 DAY INTERVALS
     Route: 065
     Dates: end: 200610
  14. GANCICLOVIR. [Concomitant]
     Active Substance: GANCICLOVIR
     Indication: CYTOMEGALOVIRUS INFECTION
     Dosage: UNK
     Route: 065
  15. PREDNISONE. [Suspect]
     Active Substance: PREDNISONE
     Dosage: 100 MG, QCY, ON DAYS 1, 2, 3, 4 AND 5
     Route: 048
  16. ALEMTUZUMAB [Suspect]
     Active Substance: ALEMTUZUMAB
     Dosage: 10 MG, QCY
     Route: 058
  17. PREDNISONE. [Suspect]
     Active Substance: PREDNISONE
     Indication: PERIPHERAL T-CELL LYMPHOMA UNSPECIFIED
     Dosage: 8 CHOP?CYCLES, 14 DAY INTERVALS
     Route: 065
  18. ONCOVIN [Suspect]
     Active Substance: VINCRISTINE SULFATE
     Dosage: MAXIMUM OF 2 MG, QCY, ON DAY 1
     Route: 042
  19. VALACICLOVIR [Concomitant]
     Active Substance: VALACYCLOVIR HYDROCHLORIDE
     Indication: PROPHYLAXIS
     Dosage: UNK
     Route: 065
     Dates: end: 200610
  20. VALACICLOVIR [Concomitant]
     Active Substance: VALACYCLOVIR HYDROCHLORIDE
     Indication: ANTIVIRAL PROPHYLAXIS
     Dosage: 500 MG,BID
     Route: 065
  21. FLUCONAZOLE. [Concomitant]
     Active Substance: FLUCONAZOLE
     Indication: ANTIVIRAL PROPHYLAXIS
     Dosage: UNK
     Route: 065
  22. ALLOPURINOL. [Concomitant]
     Active Substance: ALLOPURINOL
     Indication: PROPHYLAXIS
     Dosage: 300 MG,UNK
     Route: 065
  23. CLEMASTINE [Concomitant]
     Active Substance: CLEMASTINE
     Indication: PREMEDICATION
     Dosage: 2 MG,UNK, TAPERED DURING THE NEXT 2 WEEKS
     Route: 065
  24. ALEMTUZUMAB [Suspect]
     Active Substance: ALEMTUZUMAB
     Dosage: 30 MG, QCY, SUBCUTANEOUSLY PER INJECTION, AT DAYS 1, 5 AND 10
     Route: 058
  25. CYCLOPHOSPHAMIDE. [Suspect]
     Active Substance: CYCLOPHOSPHAMIDE
     Indication: PERIPHERAL T-CELL LYMPHOMA UNSPECIFIED
     Dosage: 8 CHOP?CYCLES, 14 DAY INTERVALS
     Route: 065
     Dates: end: 200610
  26. COTRIMOXAZOLE [Concomitant]
     Active Substance: SULFAMETHOXAZOLE\TRIMETHOPRIM
     Indication: ANTIFUNGAL PROPHYLAXIS
  27. FLUCONAZOLE. [Concomitant]
     Active Substance: FLUCONAZOLE
     Indication: ANTIFUNGAL PROPHYLAXIS

REACTIONS (4)
  - T-cell lymphoma [Fatal]
  - Epstein-Barr virus associated lymphoma [Fatal]
  - Lymphoproliferative disorder [Unknown]
  - Haemophagocytic lymphohistiocytosis [Fatal]
